FAERS Safety Report 18206320 (Version 2)
Quarter: 2020Q3

REPORT INFORMATION
  Report Type: Report from Study
  Country: None (occurrence: CA)
  Receive Date: 20200827
  Receipt Date: 20200908
  Transmission Date: 20201103
  Serious: Yes (Hospitalization)
  Sender: FDA-Public Use
  Company Number: CA-ABBVIE-20K-028-3541502-00

PATIENT
  Age: 43 Year
  Sex: Female

DRUGS (7)
  1. SKYRIZI [Suspect]
     Active Substance: RISANKIZUMAB-RZAA
     Route: 058
     Dates: end: 20200901
  2. CIPROFLOXACIN. [Suspect]
     Active Substance: CIPROFLOXACIN
     Route: 048
  3. BUSCOPAN [Concomitant]
     Active Substance: BUTYLSCOPOLAMINE BROMIDE
     Indication: PRODUCT USED FOR UNKNOWN INDICATION
  4. SKYRIZI [Suspect]
     Active Substance: RISANKIZUMAB-RZAA
     Indication: PSORIASIS
     Route: 058
     Dates: start: 20200804, end: 20200804
  5. ADVIL [Concomitant]
     Active Substance: IBUPROFEN
     Indication: PRODUCT USED FOR UNKNOWN INDICATION
  6. SKYRIZI [Suspect]
     Active Substance: RISANKIZUMAB-RZAA
     Route: 058
  7. CIPROFLOXACIN. [Suspect]
     Active Substance: CIPROFLOXACIN
     Indication: GASTROINTESTINAL INFECTION
     Route: 048
     Dates: start: 20200818, end: 20200818

REACTIONS (14)
  - Diarrhoea [Recovered/Resolved]
  - Haematochezia [Recovered/Resolved]
  - Mood altered [Unknown]
  - Abdominal discomfort [Not Recovered/Not Resolved]
  - Abdominal pain upper [Recovered/Resolved]
  - Pain [Recovering/Resolving]
  - Unevaluable event [Unknown]
  - Epigastric discomfort [Unknown]
  - Gastrointestinal infection [Recovering/Resolving]
  - Muscular weakness [Unknown]
  - Abdominal pain [Recovered/Resolved]
  - Rectal tenesmus [Unknown]
  - Diarrhoea [Unknown]
  - Abdominal pain upper [Unknown]

NARRATIVE: CASE EVENT DATE: 2020
